FAERS Safety Report 6252649-1 (Version None)
Quarter: 2009Q3

REPORT INFORMATION
  Report Type: 
  Country: None (occurrence: None)
  Receive Date: 20090701
  Receipt Date: 20070706
  Transmission Date: 20100115
  Serious: Yes (Other)
  Sender: FDA-Public Use
  Company Number: US-ASTRAZENECA-2006UW25490

PATIENT
  Age: 17599 Day
  Sex: Male
  Weight: 93.4 kg

DRUGS (6)
  1. SEROQUEL [Suspect]
     Dosage: 100 MG
     Route: 048
     Dates: start: 20060126
  2. SEROQUEL [Suspect]
     Route: 048
  3. VALTREX [Concomitant]
     Dosage: 1 GM, 1000 MG DAILY
     Route: 048
     Dates: start: 20040813
  4. INSULIN [Concomitant]
     Dosage: 70/30 25 UNITS TWO TIMES A DAY, 75/ 25 15 UNITS WITH BREAKFAST AND 15 UNITS WITH SUPPER
     Dates: start: 20050816
  5. DIOVAN HCT [Concomitant]
     Dosage: 160/ 12.5 MG DAILY
     Dates: start: 20040101
  6. DEPAKOTE [Concomitant]
     Dates: start: 20040610

REACTIONS (2)
  - DIABETES MELLITUS [None]
  - DIABETIC EYE DISEASE [None]
